FAERS Safety Report 14484248 (Version 3)
Quarter: 2018Q1

REPORT INFORMATION
  Report Type: Spontaneous
  Country: RU (occurrence: RU)
  Receive Date: 20180205
  Receipt Date: 20180312
  Transmission Date: 20180509
  Serious: Yes (Death, Hospitalization, Other)
  Sender: FDA-Public Use
  Company Number: RU-AMGEN-RUSSP2018015381

PATIENT
  Age: 26 Year
  Sex: Male

DRUGS (6)
  1. COPLAVIX [Suspect]
     Active Substance: ASPIRIN\CLOPIDOGREL BISULFATE
     Indication: CORONARY ARTERY DISEASE
     Dosage: 100/75 MG, QD
     Route: 048
     Dates: start: 201601
  2. NITROGLYCERINE [Concomitant]
     Active Substance: NITROGLYCERIN
     Indication: ANGINA PECTORIS
     Dosage: UNK
  3. CORAXAN (IVABRADINE HYDROCHLORIDE) [Suspect]
     Active Substance: IVABRADINE HYDROCHLORIDE
     Indication: CORONARY ARTERY DISEASE
     Dosage: 5 MG, QD
     Route: 048
     Dates: start: 20160818, end: 20160928
  4. LIPRIMAR [Suspect]
     Active Substance: ATORVASTATIN CALCIUM
     Dosage: 20 MG, QD
     Route: 048
  5. CORAXAN (IVABRADINE HYDROCHLORIDE) [Suspect]
     Active Substance: IVABRADINE HYDROCHLORIDE
     Indication: ANGINA PECTORIS
  6. LIPRIMAR [Suspect]
     Active Substance: ATORVASTATIN CALCIUM
     Indication: CORONARY ARTERY DISEASE
     Dosage: 40 MG, QD
     Route: 048
     Dates: start: 201601

REACTIONS (5)
  - Product use issue [Recovered/Resolved]
  - Cardiac failure acute [Fatal]
  - Suspected counterfeit product [Recovered/Resolved]
  - Drug ineffective [Recovered/Resolved]
  - Angina pectoris [Unknown]

NARRATIVE: CASE EVENT DATE: 20160818
